FAERS Safety Report 22277862 (Version 4)
Quarter: 2023Q2

REPORT INFORMATION
  Report Type: Spontaneous
  Country: US (occurrence: US)
  Receive Date: 20230503
  Receipt Date: 20230630
  Transmission Date: 20230722
  Serious: Yes (Other)
  Sender: FDA-Public Use
  Company Number: US-SA-SAC20230427001674

PATIENT
  Age: 78 Year
  Sex: Female

DRUGS (16)
  1. AUBAGIO [Suspect]
     Active Substance: TERIFLUNOMIDE
     Indication: Multiple sclerosis
     Dosage: 14 MG, QD
     Route: 048
  2. AUBAGIO [Suspect]
     Active Substance: TERIFLUNOMIDE
     Dosage: 14 MG
  3. ZIOPTAN [Concomitant]
     Active Substance: TAFLUPROST
     Dosage: UNK
  4. ATORVASTATIN CALCIUM [Concomitant]
     Active Substance: ATORVASTATIN CALCIUM
     Dosage: 10 MG, QD
  5. ATENOLOL [Concomitant]
     Active Substance: ATENOLOL
     Dosage: 25 MG, QD
  6. AMITRIPTYLINE HYDROCHLORIDE [Concomitant]
     Active Substance: AMITRIPTYLINE HYDROCHLORIDE
     Dosage: 25 MG, QD (QHS)
     Route: 048
  7. FUROSEMIDE [Concomitant]
     Active Substance: FUROSEMIDE
     Dosage: 20 MG, QD
  8. MYRBETRIQ [Concomitant]
     Active Substance: MIRABEGRON
     Indication: Bladder disorder
     Dosage: 25 MG, QD
  9. LISINOPRIL [Concomitant]
     Active Substance: LISINOPRIL
     Dosage: 40 MG, QD
  10. AMLODIPINE [Concomitant]
     Active Substance: AMLODIPINE BESYLATE
     Dosage: 1 DF, QD; TAKE ONE TABLET EACH MORNING
  11. FOLIC ACID [Concomitant]
     Active Substance: FOLIC ACID
     Dosage: 800 UG, QD
     Route: 048
  12. OMEGA-3 FATTY ACIDS [Concomitant]
     Active Substance: OMEGA-3 FATTY ACIDS
     Dosage: UNK
  13. PFIZER-BIONTECH COVID-19 VACCINE [Concomitant]
     Active Substance: TOZINAMERAN
     Dosage: UNK
  14. PROBIOTICS NOS [Concomitant]
     Active Substance: PROBIOTICS NOS
     Dosage: UNK UNK, QD
  15. SUPER B COMPLEX [VITAMIN B COMPLEX] [Concomitant]
     Dosage: 1 DF, QD
  16. VITAMIN D3 [Concomitant]
     Active Substance: CHOLECALCIFEROL
     Dosage: UNK UNK, QD

REACTIONS (33)
  - Optic neuritis [Unknown]
  - Major depression [Unknown]
  - Multiple sclerosis relapse [Unknown]
  - COVID-19 [Unknown]
  - Condition aggravated [Unknown]
  - Cough [Unknown]
  - Vision blurred [Unknown]
  - Fatigue [Unknown]
  - Balance disorder [Unknown]
  - Motion sickness [Unknown]
  - Dizziness [Unknown]
  - Depression [Unknown]
  - Stress [Unknown]
  - Anxiety disorder [Unknown]
  - Dysphagia [Unknown]
  - Fall [Unknown]
  - Paraesthesia oral [Unknown]
  - Muscular weakness [Unknown]
  - Pain [Unknown]
  - Tremor [Unknown]
  - Memory impairment [Unknown]
  - Middle insomnia [Unknown]
  - Dysgraphia [Unknown]
  - Contusion [Unknown]
  - Coordination abnormal [Unknown]
  - Sleep disorder [Unknown]
  - Eye disorder [Unknown]
  - Affect lability [Unknown]
  - Headache [Unknown]
  - Diarrhoea [Unknown]
  - Nausea [Unknown]
  - Hypertension [Unknown]
  - Drug ineffective [Unknown]

NARRATIVE: CASE EVENT DATE: 20220101
